FAERS Safety Report 18340955 (Version 1)
Quarter: 2020Q4

REPORT INFORMATION
  Report Type: Spontaneous
  Country: US (occurrence: US)
  Receive Date: 20201003
  Receipt Date: 20201003
  Transmission Date: 20210113
  Serious: No
  Sender: FDA-Public Use
  Company Number: US-AMGEN INC.-USASP2020158392

PATIENT

DRUGS (3)
  1. AIMOVIG [Suspect]
     Active Substance: ERENUMAB-AOOE
     Indication: PRODUCT USED FOR UNKNOWN INDICATION
     Dosage: 140 MILLIGRAM, QMO
     Route: 065
  2. TRIPTAN [OXITRIPTAN] [Concomitant]
     Active Substance: OXITRIPTAN
     Route: 065
  3. MAXALT [Concomitant]
     Active Substance: RIZATRIPTAN BENZOATE
     Route: 065

REACTIONS (1)
  - Therapeutic response shortened [Unknown]
